FAERS Safety Report 21487315 (Version 6)
Quarter: 2023Q1

REPORT INFORMATION
  Report Type: Report from Study
  Country: FR (occurrence: FR)
  Receive Date: 20221020
  Receipt Date: 20230119
  Transmission Date: 20230418
  Serious: Yes (Death, Hospitalization, Disabling, Other)
  Sender: FDA-Public Use
  Company Number: FR-JNJFOC-20221030529

PATIENT
  Age: 62 Year
  Sex: Female
  Weight: 53 kg

DRUGS (4)
  1. AMIVANTAMAB [Suspect]
     Active Substance: AMIVANTAMAB
     Indication: Non-small cell lung cancer
     Dosage: C1D1; 350 MG/ML
     Route: 042
     Dates: start: 20220921, end: 20220921
  2. AMIVANTAMAB [Suspect]
     Active Substance: AMIVANTAMAB
     Dosage: C1D2; 350 MG/ML
     Route: 042
     Dates: start: 20220922
  3. AMIVANTAMAB [Suspect]
     Active Substance: AMIVANTAMAB
     Dosage: C1D8; 350 MG/ML
     Route: 042
     Dates: start: 20220927
  4. AMIVANTAMAB [Suspect]
     Active Substance: AMIVANTAMAB
     Dosage: C1D15; 350 MG/ML
     Route: 042
     Dates: start: 20221005, end: 20221005

REACTIONS (1)
  - Interstitial lung disease [Fatal]

NARRATIVE: CASE EVENT DATE: 20221014
